FAERS Safety Report 4675013-5 (Version None)
Quarter: 2005Q2

REPORT INFORMATION
  Report Type: 
  Country: None (occurrence: None)
  Receive Date: 20050526
  Receipt Date: 20050524
  Transmission Date: 20051028
  Serious: Yes (Death, Hospitalization, Other)
  Sender: FDA-Public Use
  Company Number: 2013363

PATIENT
  Age: 34 Year
  Sex: Male
  Weight: 104 kg

DRUGS (33)
  1. OXYCONTIN [Suspect]
     Indication: PAIN
     Dosage: 20 MG, ORAL
     Route: 048
     Dates: start: 19970614
  2. OXYCONTIN [Suspect]
     Indication: PAIN
     Dosage: 40 MG, ORAL
     Route: 048
     Dates: start: 19970804
  3. HYDROCODONE BITARTRATE + ACETAMINOPHEN [Suspect]
     Dosage: 10 MG, SEE TEXT, ORAL
     Route: 048
     Dates: start: 19970729
  4. AMITRIPTYLINE HCL [Suspect]
     Dosage: 100 MG, NOCTE
  5. ACETAMINOPHEN [Suspect]
  6. CANNABINOIDS [Suspect]
  7. TYLOX (OXYCODONE TEREPHTHALATE) [Concomitant]
  8. ATIVAN [Concomitant]
  9. XANAX [Concomitant]
  10. VIOXX [Concomitant]
  11. PAMELOR [Concomitant]
  12. ULTRAM [Concomitant]
  13. SKELAXIN [Concomitant]
  14. BUSPAR [Concomitant]
  15. TENORMIN [Concomitant]
  16. NARCAN [Concomitant]
  17. AMBIEN [Concomitant]
  18. HALDOL [Concomitant]
  19. COGENTIN [Concomitant]
  20. NARCAN [Concomitant]
  21. DIAZEPAM [Concomitant]
  22. BACLOFEN [Concomitant]
  23. LORCET-HD [Concomitant]
  24. TORADOL [Concomitant]
  25. PHENERGAN [Concomitant]
  26. E-MYCIN (ERYTHROMYCIN) [Concomitant]
  27. FLOVENT [Concomitant]
  28. THEO-DUR [Concomitant]
  29. PREDNISONE [Concomitant]
  30. SOMA [Concomitant]
  31. PROVENTIL INHALER (SALUTAMOL) [Concomitant]
  32. PERCOCET [Concomitant]
  33. PENICILLIN V-K (PHENOXYMETHYLPENICILLIN POTASSIUM) TABLET [Concomitant]

REACTIONS (45)
  - ABNORMAL BEHAVIOUR [None]
  - ALCOHOLISM [None]
  - ANXIETY [None]
  - ARTHRALGIA [None]
  - ASTHENIA [None]
  - BONE PAIN [None]
  - BORDERLINE MENTAL IMPAIRMENT [None]
  - BRONCHITIS [None]
  - CARDIOMEGALY [None]
  - CHRONIC OBSTRUCTIVE PULMONARY DISEASE [None]
  - DELINQUENCY [None]
  - DELIRIUM [None]
  - DEPRESSED LEVEL OF CONSCIOUSNESS [None]
  - DIARRHOEA [None]
  - DRUG ABUSER [None]
  - DRUG DEPENDENCE [None]
  - DRUG TOXICITY [None]
  - DRUG WITHDRAWAL SYNDROME [None]
  - DYSPEPSIA [None]
  - EMOTIONAL DISTRESS [None]
  - FALL [None]
  - GENERALISED ANXIETY DISORDER [None]
  - HAND FRACTURE [None]
  - HYPERTENSION [None]
  - HYPOAESTHESIA [None]
  - INADEQUATE ANALGESIA [None]
  - LEARNING DISABILITY [None]
  - MAJOR DEPRESSION [None]
  - MALE SEXUAL DYSFUNCTION [None]
  - MUSCULOSKELETAL STIFFNESS [None]
  - NOCTURIA [None]
  - OBESITY [None]
  - OVERDOSE [None]
  - PAIN IN EXTREMITY [None]
  - PARAESTHESIA [None]
  - PNEUMOCONIOSIS [None]
  - POLLAKIURIA [None]
  - PYREXIA [None]
  - SOMNOLENCE [None]
  - SPEECH DISORDER [None]
  - SPINAL OSTEOARTHRITIS [None]
  - SUICIDAL IDEATION [None]
  - TOOTH EXTRACTION [None]
  - URINARY INCONTINENCE [None]
  - VOMITING [None]
